FAERS Safety Report 12072354 (Version 1)
Quarter: 2016Q1

REPORT INFORMATION
  Report Type: Spontaneous
  Country: US (occurrence: None)
  Receive Date: 20160211
  Receipt Date: 20160211
  Transmission Date: 20160526
  Serious: Yes (Disabling, Other)
  Sender: FDA-Public Use
  Company Number: None

PATIENT
  Age: 64 Year
  Sex: Female
  Weight: 58.06 kg

DRUGS (7)
  1. METHOTREXATE 15MG RESUVO [Suspect]
     Active Substance: METHOTREXATE
     Indication: PSORIATIC ARTHROPATHY
     Dosage: INTO THE MUSCLE
     Route: 030
     Dates: start: 20151001, end: 20160131
  2. CARAFATE [Concomitant]
     Active Substance: SUCRALFATE
  3. MULTI VITAMIN [Concomitant]
     Active Substance: VITAMINS
  4. OMEPRAZOLE. [Concomitant]
     Active Substance: OMEPRAZOLE
  5. FOLIC ACID. [Concomitant]
     Active Substance: FOLIC ACID
  6. METHOTREXATE 15MG RESUVO [Suspect]
     Active Substance: METHOTREXATE
     Indication: RHEUMATOID ARTHRITIS
     Dosage: INTO THE MUSCLE
     Route: 030
     Dates: start: 20151001, end: 20160131
  7. VITAMIN D [Concomitant]
     Active Substance: CHOLECALCIFEROL

REACTIONS (5)
  - Bladder discomfort [None]
  - Burning sensation [None]
  - Urinary bladder haemorrhage [None]
  - Bladder prolapse [None]
  - Renal disorder [None]

NARRATIVE: CASE EVENT DATE: 20151010
